FAERS Safety Report 10561249 (Version 1)
Quarter: 2014Q4

REPORT INFORMATION
  Report Type: Spontaneous
  Country: US (occurrence: US)
  Receive Date: 20141103
  Receipt Date: 20141103
  Transmission Date: 20150529
  Serious: Yes (Other)
  Sender: FDA-Public Use
  Company Number: US-ELI_LILLY_AND_COMPANY-US201410011126

PATIENT
  Sex: Female

DRUGS (2)
  1. TERIPARATIDE [Suspect]
     Active Substance: TERIPARATIDE
     Indication: OSTEOPOROSIS
     Dosage: UNK, QD
     Route: 065
     Dates: start: 201409, end: 20141007
  2. TERIPARATIDE [Suspect]
     Active Substance: TERIPARATIDE
     Indication: FRACTURE

REACTIONS (2)
  - Bone cancer [Unknown]
  - Lung neoplasm malignant [Unknown]
